FAERS Safety Report 12632999 (Version 1)
Quarter: 2016Q3

REPORT INFORMATION
  Report Type: Spontaneous
  Country: US (occurrence: None)
  Receive Date: 20160808
  Receipt Date: 20160808
  Transmission Date: 20161109
  Serious: No
  Sender: FDA-Public Use
  Company Number: None

PATIENT
  Age: 46 Year
  Sex: Female
  Weight: 88.45 kg

DRUGS (11)
  1. FISH OIL [Concomitant]
     Active Substance: FISH OIL
  2. VITAMIN D3 [Concomitant]
     Active Substance: CHOLECALCIFEROL
  3. PREDNISILONE ACETATE OPYHALMIC, 1% [Suspect]
     Active Substance: PREDNISOLONE\PREDNISONE
     Indication: IRIDOTOMY
     Route: 047
     Dates: start: 20160801, end: 20160807
  4. FIBER CAPSULES [Concomitant]
  5. AMBIEN [Concomitant]
     Active Substance: ZOLPIDEM TARTRATE
  6. VITAMIN B COMPLEX [Concomitant]
     Active Substance: CYANOCOBALAMIN\DEXPANTHENOL\NIACINAMIDE\PYRIDOXINE HYDROCHLORIDE\RIBOFLAVIN 5^-PHOSPHATE SODIUM\THIAMINE HYDROCHLORIDE\VITAMIN B COMPLEX
  7. POTASSIUM [Concomitant]
     Active Substance: POTASSIUM
  8. CRYSELLE [Concomitant]
     Active Substance: ETHINYL ESTRADIOL\NORGESTREL
  9. MAGNESIUM [Concomitant]
     Active Substance: MAGNESIUM
  10. L-LYSINE [Concomitant]
     Active Substance: LYSINE
  11. GLUCOSAMINE [Concomitant]
     Active Substance: GLUCOSAMINE

REACTIONS (3)
  - Sinus disorder [None]
  - Dysgeusia [None]
  - Throat irritation [None]

NARRATIVE: CASE EVENT DATE: 20160801
